FAERS Safety Report 6700698-9 (Version None)
Quarter: 2010Q2

REPORT INFORMATION
  Report Type: 
  Country: None (occurrence: None)
  Receive Date: 20100426
  Receipt Date: 20100410
  Transmission Date: 20101027
  Serious: Yes (Hospitalization)
  Sender: FDA-Public Use
  Company Number: 230224K09BRA

PATIENT
  Age: 37 Year
  Sex: Male

DRUGS (1)
  1. REBIF [Suspect]
     Indication: RELAPSING-REMITTING MULTIPLE SCLEROSIS
     Dosage: 22 MCG, 3 IN 1 WK
     Dates: start: 20080520

REACTIONS (5)
  - EYE PAIN [None]
  - HEADACHE [None]
  - PHOTOPHOBIA [None]
  - VISUAL IMPAIRMENT [None]
  - WEIGHT DECREASED [None]
